FAERS Safety Report 22083006 (Version 1)
Quarter: 2023Q1

REPORT INFORMATION
  Report Type: Spontaneous
  Country: US (occurrence: US)
  Receive Date: 20230310
  Receipt Date: 20230310
  Transmission Date: 20230418
  Serious: Yes (Hospitalization, Other)
  Sender: FDA-Public Use
  Company Number: US-Accord-303227

PATIENT
  Age: 64 Year
  Sex: Female
  Weight: 93 kg

DRUGS (3)
  1. ISOSORBIDE MONONITRATE [Suspect]
     Active Substance: ISOSORBIDE MONONITRATE
     Dosage: HAD OLD PRESCRIPTION BOTTLES
  2. RIVAROXABAN [Suspect]
     Active Substance: RIVAROXABAN
     Dosage: HAD OLD PRESCRIPTION BOTTLES
  3. ACETAMINOPHEN [Suspect]
     Active Substance: ACETAMINOPHEN
     Dosage: AN OVER-THE-COUNTER ACETAMINOPHEN BOTTLE

REACTIONS (12)
  - Intentional overdose [Unknown]
  - Intentional self-injury [Unknown]
  - Suicide attempt [Unknown]
  - Nausea [Unknown]
  - Dizziness [Unknown]
  - Headache [Unknown]
  - Epistaxis [Unknown]
  - Oedema peripheral [Unknown]
  - Haematoma [Unknown]
  - Hemiparesis [Unknown]
  - Haemoptysis [Unknown]
  - Haemorrhage [Recovered/Resolved]
